FAERS Safety Report 4960645-7 (Version None)
Quarter: 2006Q2

REPORT INFORMATION
  Report Type: 
  Country: None (occurrence: None)
  Receive Date: 20060403
  Receipt Date: 20051021
  Transmission Date: 20061013
  Serious: Yes (Hospitalization)
  Sender: FDA-Public Use
  Company Number: AU-MERCK-0510AUS00132

PATIENT
  Age: 62 Year
  Sex: Female
  Weight: 95 kg

DRUGS (18)
  1. VIOXX [Suspect]
     Indication: ARTHRITIS
     Route: 048
     Dates: start: 20010101, end: 20040101
  2. VIOXX [Suspect]
     Indication: OSTEOARTHRITIS
     Route: 048
     Dates: start: 20010101, end: 20040101
  3. NITROGLYCERIN [Concomitant]
     Route: 065
  4. ASPIRIN [Concomitant]
     Route: 065
  5. CALCIUM CARBONATE [Concomitant]
     Route: 065
  6. DILTIAZEM HYDROCHLORIDE [Concomitant]
     Route: 065
  7. CEFACLOR [Concomitant]
     Route: 065
  8. CITALOPRAM HYDROBROMIDE [Concomitant]
     Route: 065
  9. PERINDOPRIL ERBUMINE [Concomitant]
     Route: 065
  10. NITROGLYCERIN [Concomitant]
     Route: 061
  11. ESTRADIOL AND NORETHINDRONE ACETATE [Concomitant]
     Route: 065
  12. ATORVASTATIN CALCIUM [Concomitant]
     Route: 065
  13. METOPROLOL [Concomitant]
     Route: 065
  14. DISOPYRAMIDE [Concomitant]
     Route: 065
  15. [THERAPY UNSPECIFIED] [Concomitant]
     Route: 065
  16. ALBUTEROL SULFATE [Concomitant]
     Route: 065
  17. LANSOPRAZOLE [Concomitant]
     Route: 065
  18. RANITIDINE HYDROCHLORIDE [Concomitant]
     Route: 065

REACTIONS (7)
  - ACTINIC KERATOSIS [None]
  - ASTHMA [None]
  - DEPRESSION [None]
  - ENDOMETRIAL DISORDER [None]
  - HYPERTENSION [None]
  - MYOCARDIAL INFARCTION [None]
  - SLEEP APNOEA SYNDROME [None]
